FAERS Safety Report 9929083 (Version 1)
Quarter: 2014Q1

REPORT INFORMATION
  Report Type: Spontaneous
  Country: US (occurrence: US)
  Receive Date: 20140227
  Receipt Date: 20140227
  Transmission Date: 20141002
  Serious: No
  Sender: FDA-Public Use
  Company Number: US-TEVA-464866USA

PATIENT
  Age: 62 Year
  Sex: Female
  Weight: 54.48 kg

DRUGS (3)
  1. COPAXONE [Suspect]
     Indication: MULTIPLE SCLEROSIS
  2. AMITRIPTYLINE [Concomitant]
     Indication: SLEEP DISORDER
  3. TOPROL [Concomitant]
     Indication: HYPERTENSION

REACTIONS (3)
  - Injection site pain [Recovered/Resolved]
  - Injection site reaction [Recovered/Resolved]
  - Incorrect route of drug administration [Recovered/Resolved]
